FAERS Safety Report 6773993-5 (Version None)
Quarter: 2010Q2

REPORT INFORMATION
  Report Type: 
  Country: None (occurrence: None)
  Receive Date: 20100615
  Receipt Date: 20100615
  Transmission Date: 20101027
  Serious: Yes (Life-Threatening)
  Sender: FDA-Public Use
  Company Number: None

PATIENT
  Sex: Male
  Weight: 136.9863 kg

DRUGS (1)
  1. AVAPRO [Suspect]
     Indication: HYPERTENSION
     Dosage: 150 MG DAILY PO
     Route: 048
     Dates: start: 20080318, end: 20100602

REACTIONS (3)
  - ATRIAL FIBRILLATION [None]
  - HEART SOUNDS ABNORMAL [None]
  - IMPAIRED WORK ABILITY [None]
